FAERS Safety Report 22223183 (Version 3)
Quarter: 2024Q1

REPORT INFORMATION
  Report Type: Spontaneous
  Country: US (occurrence: US)
  Receive Date: 20230418
  Receipt Date: 20240213
  Transmission Date: 20240409
  Serious: Yes (Other)
  Sender: FDA-Public Use
  Company Number: US-PFIZER INC-202300157107

PATIENT
  Age: 81 Year
  Sex: Female

DRUGS (11)
  1. IBRANCE [Suspect]
     Active Substance: PALBOCICLIB
     Dosage: 100 MG, CYCLIC (Q21 DAYS WITH 7 DAYS OFF)
     Dates: start: 20221229
  2. IBRANCE [Suspect]
     Active Substance: PALBOCICLIB
     Dosage: 75MG DAILY FOR 21 DAYS ON, 7 DAYS OFF
     Dates: start: 202302
  3. METOPROLOL SUCCINATE [Concomitant]
     Active Substance: METOPROLOL SUCCINATE
  4. ASPIRIN [Concomitant]
     Active Substance: ASPIRIN
  5. VITAMIN D3 [Concomitant]
     Active Substance: CHOLECALCIFEROL
  6. LETROZOLE [Concomitant]
     Active Substance: LETROZOLE
  7. HYDRALAZINE [Concomitant]
     Active Substance: HYDRALAZINE HYDROCHLORIDE
  8. LOSARTAN [Concomitant]
     Active Substance: LOSARTAN
  9. PROLIA [Concomitant]
     Active Substance: DENOSUMAB
  10. SERTRALINE [Concomitant]
     Active Substance: SERTRALINE HYDROCHLORIDE
  11. TIMOLOL [Concomitant]
     Active Substance: TIMOLOL
     Dosage: OPHTH (OPHTHALMIC) SOLUTION

REACTIONS (4)
  - Neutropenia [Not Recovered/Not Resolved]
  - Asthma [Recovering/Resolving]
  - Fatigue [Not Recovered/Not Resolved]
  - Anaemia [Not Recovered/Not Resolved]

NARRATIVE: CASE EVENT DATE: 20230314
